FAERS Safety Report 5227685-4 (Version None)
Quarter: 2007Q1

REPORT INFORMATION
  Report Type: 
  Country: None (occurrence: None)
  Receive Date: 20070202
  Receipt Date: 20070124
  Transmission Date: 20070707
  Serious: Yes (Other)
  Sender: FDA-Public Use
  Company Number: IE-ABBOTT-07P-229-0357131-00

PATIENT
  Sex: Female

DRUGS (2)
  1. EPILIM CHRONO TABLET PR [Suspect]
     Indication: DRUG USE FOR UNKNOWN INDICATION
     Route: 048
  2. EPILIM CHRONO TABLET PR [Suspect]
     Route: 048

REACTIONS (3)
  - COMPLEX PARTIAL SEIZURES [None]
  - CONVULSION [None]
  - ORAL MUCOSAL DISORDER [None]
